FAERS Safety Report 9472466 (Version 1)
Quarter: 2013Q3

REPORT INFORMATION
  Report Type: Spontaneous
  Country: US (occurrence: None)
  Receive Date: 20130821
  Receipt Date: 20130821
  Transmission Date: 20140515
  Serious: No
  Sender: FDA-Public Use
  Company Number: None

PATIENT
  Sex: Female

DRUGS (1)
  1. ACTEMRA [Suspect]
     Dosage: 200 MG/10ML IV TO BE ADMINISTERED BY PHYSICIAN INFUSE 4MG/KG (410) INTRAVENOUSLY EVERY 4 WEEKS ***DISCARD UNUSED PORTION OF SINGLE DOSE VIAL***

REACTIONS (3)
  - Dry mouth [None]
  - Lip dry [None]
  - Rash [None]
